FAERS Safety Report 5049476-X (Version None)
Quarter: 2006Q3

REPORT INFORMATION
  Report Type: 
  Country: None (occurrence: None)
  Receive Date: 20060711
  Receipt Date: 20060711
  Transmission Date: 20061208
  Serious: Yes (Life-Threatening, Other)
  Sender: FDA-Public Use
  Company Number: None

PATIENT
  Age: 70 Year
  Sex: Male
  Weight: 90.2658 kg

DRUGS (1)
  1. FLAGYL [Suspect]
     Indication: DIVERTICULITIS
     Dosage: 100 ML  IV
     Route: 042
     Dates: start: 20060303, end: 20060304

REACTIONS (2)
  - LOCAL SWELLING [None]
  - SWELLING [None]
